FAERS Safety Report 16809230 (Version 4)
Quarter: 2019Q3

REPORT INFORMATION
  Report Type: Spontaneous
  Country: CA (occurrence: CA)
  Receive Date: 20190916
  Receipt Date: 20190929
  Transmission Date: 20191005
  Serious: Yes (Hospitalization, Other)
  Sender: FDA-Public Use
  Company Number: PHHY2019CA212813

PATIENT
  Age: 64 Year
  Sex: Male

DRUGS (6)
  1. SANDOSTATIN LAR DEPOT [Suspect]
     Active Substance: OCTREOTIDE ACETATE
     Indication: SHORT-BOWEL SYNDROME
     Dosage: UNK UNK, TID
     Route: 058
  2. SANDOSTATIN LAR DEPOT [Suspect]
     Active Substance: OCTREOTIDE ACETATE
     Dosage: 40 MG, QMO
     Route: 030
  3. CODEINE PHOSPHATE [Suspect]
     Active Substance: CODEINE PHOSPHATE
     Indication: PRODUCT USED FOR UNKNOWN INDICATION
     Dosage: UNK
     Route: 065
  4. SANDOSTATIN LAR DEPOT [Suspect]
     Active Substance: OCTREOTIDE ACETATE
     Dosage: 20 MG, QMO
     Route: 030
  5. SANDOSTATIN LAR DEPOT [Suspect]
     Active Substance: OCTREOTIDE ACETATE
     Dosage: 30 MG, QMO
     Route: 030
  6. MORPHINE SULFATE INJ USP [Suspect]
     Active Substance: MORPHINE SULFATE
     Indication: PRODUCT USED FOR UNKNOWN INDICATION
     Dosage: UNK
     Route: 030

REACTIONS (22)
  - Pneumonia [Recovering/Resolving]
  - Malaise [Recovering/Resolving]
  - Gastrooesophageal reflux disease [Recovering/Resolving]
  - Fungal infection [Recovering/Resolving]
  - Pain in extremity [Recovering/Resolving]
  - Blood pressure increased [Recovering/Resolving]
  - Vomiting [Recovering/Resolving]
  - Gastrointestinal bacterial infection [Recovering/Resolving]
  - Infection [Recovering/Resolving]
  - Kidney infection [Recovering/Resolving]
  - Cortisol decreased [Recovering/Resolving]
  - Intestinal obstruction [Recovering/Resolving]
  - Catheter site infection [Recovering/Resolving]
  - Electrolyte imbalance [Recovering/Resolving]
  - Immunodeficiency [Recovering/Resolving]
  - Dehydration [Recovering/Resolving]
  - Upper limb fracture [Recovering/Resolving]
  - Bacterial test positive [Recovering/Resolving]
  - Respiratory disorder [Recovering/Resolving]
  - Contusion [Recovering/Resolving]
  - Fall [Recovering/Resolving]
  - Product use in unapproved indication [Recovering/Resolving]
